FAERS Safety Report 7396616-3 (Version None)
Quarter: 2011Q2

REPORT INFORMATION
  Report Type: 
  Country: None (occurrence: None)
  Receive Date: 20110406
  Receipt Date: 20110329
  Transmission Date: 20111010
  Serious: Yes (Hospitalization)
  Sender: FDA-Public Use
  Company Number: PHHY2011GR26322

PATIENT
  Age: 41 Year
  Sex: Female

DRUGS (2)
  1. ZINADOL [Concomitant]
     Dosage: UNK
  2. EXTAVIA [Suspect]
     Dates: start: 20101207

REACTIONS (2)
  - BLOOD PRESSURE INCREASED [None]
  - TACHYCARDIA [None]
